FAERS Safety Report 23145965 (Version 10)
Quarter: 2025Q1

REPORT INFORMATION
  Report Type: Spontaneous
  Country: CA (occurrence: CA)
  Receive Date: 20231104
  Receipt Date: 20250127
  Transmission Date: 20250409
  Serious: Yes (Other)
  Sender: CELLTRION
  Company Number: CA-CELLTRION INC.-2023CA008350

PATIENT

DRUGS (19)
  1. INFLECTRA [Suspect]
     Active Substance: INFLIXIMAB-DYYB
     Indication: Crohn^s disease
     Route: 042
     Dates: start: 20230905
  2. INFLECTRA [Suspect]
     Active Substance: INFLIXIMAB-DYYB
     Route: 042
     Dates: start: 20231018
  3. INFLECTRA [Suspect]
     Active Substance: INFLIXIMAB-DYYB
     Route: 042
     Dates: start: 20231214
  4. INFLECTRA [Suspect]
     Active Substance: INFLIXIMAB-DYYB
     Route: 042
     Dates: start: 20240221
  5. INFLECTRA [Suspect]
     Active Substance: INFLIXIMAB-DYYB
     Route: 042
     Dates: start: 20240417
  6. INFLECTRA [Suspect]
     Active Substance: INFLIXIMAB-DYYB
     Route: 042
     Dates: start: 20240612
  7. INFLECTRA [Suspect]
     Active Substance: INFLIXIMAB-DYYB
     Route: 042
     Dates: start: 20240807
  8. INFLECTRA [Suspect]
     Active Substance: INFLIXIMAB-DYYB
     Route: 042
     Dates: start: 20241009
  9. INFLECTRA [Suspect]
     Active Substance: INFLIXIMAB-DYYB
     Route: 042
     Dates: start: 20241209
  10. ATORVASTATIN [Concomitant]
     Active Substance: ATORVASTATIN
  11. BENADRYL [Concomitant]
     Active Substance: DIPHENHYDRAMINE HYDROCHLORIDE
     Indication: Premedication
     Dates: start: 20231214
  12. CELEBREX [Concomitant]
     Active Substance: CELECOXIB
     Indication: Crohn^s disease
  13. CELEBREX [Concomitant]
     Active Substance: CELECOXIB
  14. CELECOXIB [Concomitant]
     Active Substance: CELECOXIB
  15. DULOXETINE [Concomitant]
     Active Substance: DULOXETINE
     Indication: Pain
  16. ENTYVIO [Concomitant]
     Active Substance: VEDOLIZUMAB
     Dates: start: 202201
  17. METHYLPREDNISOLONE ACETATE [Concomitant]
     Active Substance: METHYLPREDNISOLONE ACETATE
     Indication: Premedication
     Dates: start: 20231214
  18. RABEPRAZOLE [Concomitant]
     Active Substance: RABEPRAZOLE
  19. TYLENOL [Concomitant]
     Active Substance: ACETAMINOPHEN
     Indication: Premedication
     Dates: start: 20231214

REACTIONS (17)
  - Toxic cataract [Unknown]
  - Therapeutic product effect incomplete [Unknown]
  - Hypersomnia [Unknown]
  - Movement disorder [Unknown]
  - Aphthous ulcer [Recovered/Resolved]
  - Frustration tolerance decreased [Unknown]
  - Abdominal distension [Recovering/Resolving]
  - Skin abrasion [Recovered/Resolved]
  - Skin lesion [Recovered/Resolved]
  - Osteoarthritis [Unknown]
  - Back pain [Unknown]
  - Fatigue [Not Recovered/Not Resolved]
  - Pain [Not Recovered/Not Resolved]
  - Arthralgia [Unknown]
  - Pruritus [Recovering/Resolving]
  - Abscess [Unknown]
  - Condition aggravated [Not Recovered/Not Resolved]

NARRATIVE: CASE EVENT DATE: 20230101
